FAERS Safety Report 8854767 (Version 1)
Quarter: 2012Q4

REPORT INFORMATION
  Report Type: 
  Country: US (occurrence: US)
  Receive Date: 20121023
  Receipt Date: 20121023
  Transmission Date: 20130627
  Serious: No
  Sender: FDA-Public Use
  Company Number: US-BAYER-2012-110795

PATIENT
  Age: 85 Year
  Sex: Female
  Weight: 81.63 kg

DRUGS (4)
  1. ALEVE CAPLET/TABLET,MIDOL EXTENDED RELIEF CAPLET [Suspect]
     Indication: PAIN RELIEF
     Dosage: 2 DF, PRN
     Route: 048
     Dates: start: 201209, end: 201210
  2. PRAVASTATIN [Concomitant]
  3. ANTIHYPERTENSIVES [Concomitant]
  4. ACETAMINOPHEN [Concomitant]

REACTIONS (1)
  - Arthralgia [None]
